FAERS Safety Report 6219624-4 (Version None)
Quarter: 2009Q2

REPORT INFORMATION
  Report Type: 
  Country: None (occurrence: None)
  Receive Date: 20090609
  Receipt Date: 20090602
  Transmission Date: 20091009
  Serious: Yes (Hospitalization)
  Sender: FDA-Public Use
  Company Number: PHHO2008US10258

PATIENT
  Sex: Female
  Weight: 85.1 kg

DRUGS (4)
  1. AMN107 AMN+CAP [Suspect]
     Indication: GASTROINTESTINAL STROMAL TUMOUR
     Dosage: 400 MG, QD
     Route: 048
     Dates: start: 20080801, end: 20080818
  2. COMPAZINE [Concomitant]
     Indication: NAUSEA
     Dosage: UNK
  3. MORPHINE [Concomitant]
     Indication: PAIN
     Dosage: UNK
  4. ZOFRAN [Concomitant]
     Indication: NAUSEA
     Dosage: UNK

REACTIONS (3)
  - ABDOMINAL PAIN [None]
  - ENTERITIS [None]
  - NAUSEA [None]
